FAERS Safety Report 5287474-1 (Version None)
Quarter: 2007Q1

REPORT INFORMATION
  Report Type: 
  Country: None (occurrence: None)
  Receive Date: 20070116
  Receipt Date: 20060919
  Transmission Date: 20070707
  Serious: No
  Sender: FDA-Public Use
  Company Number: 2006SP003343

PATIENT
  Age: 40 Year
  Sex: Female
  Weight: 72.5755 kg

DRUGS (8)
  1. LUNESTA [Suspect]
     Indication: SLEEP DISORDER
     Dosage: SEE IMAGE
     Route: 048
     Dates: start: 20050101, end: 20050101
  2. LUNESTA [Suspect]
     Indication: SLEEP DISORDER
     Dosage: SEE IMAGE
     Route: 048
     Dates: start: 20060824, end: 20060915
  3. MORPHINE SULFATE [Concomitant]
  4. PERCOCET [Concomitant]
  5. LYRICA [Concomitant]
  6. VITAMIN B [Concomitant]
  7. VITAMIN CAP [Concomitant]
  8. VITAMIN B-12 [Concomitant]

REACTIONS (3)
  - DYSGEUSIA [None]
  - SLEEP WALKING [None]
  - THERMAL BURN [None]
